FAERS Safety Report 6956573-8 (Version None)
Quarter: 2010Q3

REPORT INFORMATION
  Report Type: 
  Country: None (occurrence: None)
  Receive Date: 20100826
  Receipt Date: 20100819
  Transmission Date: 20110219
  Serious: Yes (Hospitalization, Other)
  Sender: FDA-Public Use
  Company Number: CTI_01230_2010

PATIENT
  Age: 73 Year
  Sex: Male

DRUGS (5)
  1. CEFDITOREN PIVOXIL (CEFDITOREN PIVOXIL (GIASON)) 200 MG [Suspect]
     Indication: BRONCHITIS
     Dosage: (200 MG QD ORAL)
     Route: 048
     Dates: start: 20100728, end: 20100803
  2. AVODART [Concomitant]
  3. LORTAAN [Concomitant]
  4. SIVASTIN [Concomitant]
  5. BUSCOPAN [Concomitant]

REACTIONS (1)
  - ILEUS PARALYTIC [None]
